FAERS Safety Report 16982439 (Version 2)
Quarter: 2019Q4

REPORT INFORMATION
  Report Type: Report from Study
  Country: RO (occurrence: RO)
  Receive Date: 20191101
  Receipt Date: 20191118
  Transmission Date: 20200122
  Serious: Yes (Hospitalization, Other)
  Sender: FDA-Public Use
  Company Number: NVSC2019RO020976

PATIENT
  Age: 57 Year
  Sex: Male

DRUGS (3)
  1. VOTRIENT [Suspect]
     Active Substance: PAZOPANIB HYDROCHLORIDE
     Indication: RENAL CELL CARCINOMA
     Dosage: 800 MG
     Route: 048
     Dates: end: 20191016
  2. VENDAL [Concomitant]
     Active Substance: MORPHINE HYDROCHLORIDE
     Indication: TENSION
     Dosage: UNK, TID (THREE TIMES A DAY)
     Route: 065
  3. GABARAN [Concomitant]
     Active Substance: GABAPENTIN
     Indication: PAIN
     Dosage: UNK, BID
     Route: 065

REACTIONS (2)
  - Metastases to bone [Unknown]
  - Lower limb fracture [Not Recovered/Not Resolved]

NARRATIVE: CASE EVENT DATE: 20191016
